FAERS Safety Report 20097963 (Version 1)
Quarter: 2021Q4

REPORT INFORMATION
  Report Type: Spontaneous
  Country: US (occurrence: US)
  Receive Date: 20211122
  Receipt Date: 20211122
  Transmission Date: 20220303
  Serious: Yes (Other)
  Sender: FDA-Public Use
  Company Number: US-BAYER-2021A248902

PATIENT
  Age: 60 Year
  Sex: Male

DRUGS (3)
  1. CALCIUM CARBONATE [Suspect]
     Active Substance: CALCIUM CARBONATE
     Dosage: 2000 MG, TID
  2. LIRAGLUTIDE [Suspect]
     Active Substance: LIRAGLUTIDE
  3. CALCITRIOL [Suspect]
     Active Substance: CALCITRIOL
     Dosage: 1 MCG QD

REACTIONS (3)
  - Acute kidney injury [Recovered/Resolved]
  - Hypercalcaemia [Recovered/Resolved]
  - Potentiating drug interaction [None]
